FAERS Safety Report 22126908 (Version 1)
Quarter: 2023Q1

REPORT INFORMATION
  Report Type: Spontaneous
  Country: AR (occurrence: AR)
  Receive Date: 20230322
  Receipt Date: 20230322
  Transmission Date: 20230418
  Serious: Yes (Hospitalization, Other)
  Sender: FDA-Public Use
  Company Number: AR-ANIPHARMA-2023-AR-000005

PATIENT
  Age: 48 Year
  Sex: Female

DRUGS (3)
  1. MORPHINE SULFATE [Suspect]
     Active Substance: MORPHINE SULFATE
     Indication: Pain
  2. SUNITINIB [Concomitant]
     Active Substance: SUNITINIB
  3. PREGABALIN [Concomitant]
     Active Substance: PREGABALIN

REACTIONS (1)
  - Cholestasis [Recovered/Resolved]
